FAERS Safety Report 13185286 (Version 1)
Quarter: 2017Q1

REPORT INFORMATION
  Report Type: Other
  Country: JP (occurrence: JP)
  Receive Date: 20170203
  Receipt Date: 20170203
  Transmission Date: 20170428
  Serious: Yes (Congenital Anomaly, Other)
  Sender: FDA-Public Use
  Company Number: JP-LUPIN PHARMACEUTICALS INC.-2017-00433

PATIENT
  Sex: 0

DRUGS (1)
  1. QUETIAPINE. [Suspect]
     Active Substance: QUETIAPINE
     Indication: PANIC DISORDER
     Route: 064

REACTIONS (7)
  - Ear malformation [Unknown]
  - Ill-defined disorder [Unknown]
  - Trisomy 21 [Unknown]
  - Limb malformation [Unknown]
  - Heart disease congenital [Unknown]
  - Brachydactyly [Unknown]
  - Foetal exposure during pregnancy [Unknown]
